FAERS Safety Report 23043785 (Version 3)
Quarter: 2023Q4

REPORT INFORMATION
  Report Type: Spontaneous
  Country: US (occurrence: US)
  Receive Date: 20231009
  Receipt Date: 20231016
  Transmission Date: 20240110
  Serious: No
  Sender: FDA-Public Use
  Company Number: US-002147023-NVSC2023US213380

PATIENT
  Sex: Male

DRUGS (1)
  1. ILARIS [Suspect]
     Active Substance: CANAKINUMAB
     Indication: Product used for unknown indication
     Dosage: 300 MG, Q6 WEEKS (2 DOSES OF 150MG VIALS)
     Route: 065

REACTIONS (6)
  - Nervousness [Unknown]
  - Injection site pain [Unknown]
  - Product storage error [Unknown]
  - Device difficult to use [Unknown]
  - Liquid product physical issue [Unknown]
  - Device leakage [Unknown]
